FAERS Safety Report 16899907 (Version 1)
Quarter: 2019Q4

REPORT INFORMATION
  Report Type: Spontaneous
  Country: US (occurrence: US)
  Receive Date: 20191009
  Receipt Date: 20191009
  Transmission Date: 20200122
  Serious: Yes (Hospitalization)
  Sender: FDA-Public Use
  Company Number: US-JNJFOC-20190937941

PATIENT
  Age: 48 Year
  Sex: Male
  Weight: 208.39 kg

DRUGS (1)
  1. SIMPONI ARIA [Suspect]
     Active Substance: GOLIMUMAB
     Indication: RHEUMATOID ARTHRITIS
     Dosage: 9 VIALS
     Route: 042
     Dates: start: 20180821

REACTIONS (2)
  - Arrhythmogenic right ventricular dysplasia [Unknown]
  - Weight decreased [Unknown]

NARRATIVE: CASE EVENT DATE: 20190701
